FAERS Safety Report 4315057-6 (Version None)
Quarter: 2004Q1

REPORT INFORMATION
  Report Type: 
  Country: None (occurrence: None)
  Receive Date: 20040310
  Receipt Date: 20040225
  Transmission Date: 20041129
  Serious: Yes (Death, Other)
  Sender: FDA-Public Use
  Company Number: PHBS2004JP02747

PATIENT
  Age: 46 Year
  Sex: Male

DRUGS (4)
  1. CYCLOSPORINE [Suspect]
     Indication: STEM CELL TRANSPLANT
     Route: 065
  2. IRRADIATION [Suspect]
     Indication: STEM CELL TRANSPLANT
     Route: 065
  3. ACYCLOVIR [Concomitant]
  4. GANCICLOVIR [Concomitant]

REACTIONS (3)
  - ACUTE MYELOID LEUKAEMIA RECURRENT [None]
  - GRAFT VERSUS HOST DISEASE [None]
  - HERPES SIMPLEX [None]
